FAERS Safety Report 21802673 (Version 2)
Quarter: 2023Q2

REPORT INFORMATION
  Report Type: Spontaneous
  Country: FR (occurrence: FR)
  Receive Date: 20221231
  Receipt Date: 20230503
  Transmission Date: 20230722
  Serious: Yes (Life-Threatening, Other)
  Sender: FDA-Public Use
  Company Number: FR-SA-SAC20221223001020

PATIENT
  Age: 64 Year
  Sex: Female
  Weight: 60 kg

DRUGS (6)
  1. ALPRAZOLAM [Suspect]
     Active Substance: ALPRAZOLAM
     Indication: Toxicity to various agents
     Dosage: 6.25MG (6.25 MG, 1X)
     Route: 048
     Dates: start: 20221201, end: 20221201
  2. PAROXETINE HYDROCHLORIDE [Suspect]
     Active Substance: PAROXETINE HYDROCHLORIDE
     Indication: Toxicity to various agents
     Dosage: 180MG (180 MG, 1X)
     Route: 048
     Dates: start: 20221201, end: 20221201
  3. ZOPICLONE [Suspect]
     Active Substance: ZOPICLONE
     Indication: Toxicity to various agents
     Dosage: 120 MG (120 MG, 1X)
     Route: 048
     Dates: start: 20221201, end: 20221201
  4. DULOXETINE HYDROCHLORIDE [Suspect]
     Active Substance: DULOXETINE HYDROCHLORIDE
     Indication: Toxicity to various agents
     Dosage: 120MG (120 MG, 1X)
     Route: 048
     Dates: start: 20221201, end: 20221201
  5. PRAZEPAM [Suspect]
     Active Substance: PRAZEPAM
     Indication: Toxicity to various agents
     Dosage: 60MG (60 MG, 1X)
     Route: 048
     Dates: start: 20221201, end: 20221201
  6. ESKETAMINE [Concomitant]
     Active Substance: ESKETAMINE
     Indication: Depression
     Dosage: UNK
     Route: 065

REACTIONS (5)
  - Electrocardiogram repolarisation abnormality [Recovering/Resolving]
  - Hypothermia [Recovering/Resolving]
  - Coma [Recovering/Resolving]
  - Troponin increased [Recovering/Resolving]
  - Hypotension [Recovering/Resolving]

NARRATIVE: CASE EVENT DATE: 20221201
